FAERS Safety Report 6533005-5 (Version None)
Quarter: 2010Q1

REPORT INFORMATION
  Report Type: 
  Country: None (occurrence: None)
  Receive Date: 20100111
  Receipt Date: 20100104
  Transmission Date: 20100710
  Serious: Yes (Other)
  Sender: FDA-Public Use
  Company Number: PHHY2010AR00662

PATIENT
  Sex: Male

DRUGS (2)
  1. DIOVAN [Suspect]
     Indication: HYPERTENSION
     Dosage: ONE TABLET (80 MG) PER DAY
  2. DIOVAN [Suspect]
     Dosage: 320 MG

REACTIONS (1)
  - HYPERTENSIVE CRISIS [None]
